FAERS Safety Report 6169674-1 (Version None)
Quarter: 2009Q2

REPORT INFORMATION
  Report Type: 
  Country: None (occurrence: None)
  Receive Date: 20090428
  Receipt Date: 20090420
  Transmission Date: 20091009
  Serious: Yes (Hospitalization)
  Sender: FDA-Public Use
  Company Number: US-BIOGENIDEC-2009BI009800

PATIENT
  Age: 60 Year
  Sex: Male

DRUGS (11)
  1. TYSABRI [Suspect]
     Indication: MULTIPLE SCLEROSIS
     Route: 042
     Dates: start: 20081218
  2. PROPRANOLOL [Concomitant]
     Indication: TREMOR
  3. METFORMIN HCL [Concomitant]
     Route: 048
  4. ERGOCALCIFEROL [Concomitant]
  5. DEPAKOTE [Concomitant]
     Route: 048
  6. ZOCOR [Concomitant]
     Route: 048
  7. FLORINEF [Concomitant]
  8. SEROQUEL [Concomitant]
  9. VALIUM [Concomitant]
  10. SYNTHROID [Concomitant]
     Route: 048
  11. GLIPIZIDE [Concomitant]

REACTIONS (9)
  - CONFUSIONAL STATE [None]
  - DECREASED ACTIVITY [None]
  - DEPRESSION [None]
  - MENTAL STATUS CHANGES [None]
  - MOBILITY DECREASED [None]
  - PYREXIA [None]
  - SUICIDAL IDEATION [None]
  - SYNCOPE [None]
  - URINARY TRACT INFECTION [None]
